FAERS Safety Report 10854174 (Version 1)
Quarter: 2015Q1

REPORT INFORMATION
  Report Type: Spontaneous
  Country: US (occurrence: US)
  Receive Date: 20150222
  Receipt Date: 20150222
  Transmission Date: 20150721
  Serious: No
  Sender: FDA-Public Use
  Company Number: US-ALLERGAN-1422239US

PATIENT
  Sex: Female

DRUGS (2)
  1. TRANSFER FACTOR [Concomitant]
     Indication: IMMUNE SYSTEM DISORDER
     Dosage: UNK
  2. BOTOX [Suspect]
     Active Substance: ONABOTULINUMTOXINA
     Indication: MIGRAINE
     Dosage: 200 UNITS, SINGLE
     Route: 030
     Dates: start: 20141016, end: 20141016

REACTIONS (5)
  - Haemorrhage [Unknown]
  - Drug administered at inappropriate site [Unknown]
  - Swelling [Unknown]
  - Mass [Unknown]
  - Off label use [Unknown]

NARRATIVE: CASE EVENT DATE: 20141016
